FAERS Safety Report 7592094-X (Version None)
Quarter: 2011Q2

REPORT INFORMATION
  Report Type: 
  Country: None (occurrence: None)
  Receive Date: 20110628
  Receipt Date: 20110617
  Transmission Date: 20111010
  Serious: Yes (Other)
  Sender: FDA-Public Use
  Company Number: DSA_46960_2011

PATIENT
  Sex: Female

DRUGS (9)
  1. ASPIRIN [Concomitant]
  2. COZAAR [Suspect]
     Indication: ARRHYTHMIA
     Dosage: (25 MG QD ORAL)
     Route: 048
     Dates: start: 20090522, end: 20090708
  3. COZAAR [Suspect]
     Indication: HYPERTENSION
     Dosage: (25 MG QD ORAL)
     Route: 048
     Dates: start: 20090522, end: 20090708
  4. LIPITOR [Concomitant]
  5. FEXOFENADINE [Concomitant]
  6. FLONASE [Concomitant]
  7. CARDIZEM LA [Suspect]
     Indication: HYPERTENSION
     Dosage: (240 MG QD ORAL)
     Route: 048
     Dates: start: 20080101
  8. CARDIZEM LA [Suspect]
     Indication: ARRHYTHMIA
     Dosage: (240 MG QD ORAL)
     Route: 048
     Dates: start: 20080101
  9. ZETIA [Concomitant]

REACTIONS (8)
  - ERYTHEMA [None]
  - PAIN IN EXTREMITY [None]
  - SKIN ULCER [None]
  - AMAUROSIS FUGAX [None]
  - LIP SWELLING [None]
  - OEDEMA PERIPHERAL [None]
  - ERYTHROMELALGIA [None]
  - SCINTILLATING SCOTOMA [None]
